FAERS Safety Report 4873006-6 (Version None)
Quarter: 2006Q1

REPORT INFORMATION
  Report Type: 
  Country: None (occurrence: None)
  Receive Date: 20060105
  Receipt Date: 20051227
  Transmission Date: 20060701
  Serious: Yes (Other)
  Sender: FDA-Public Use
  Company Number: US-KINGPHARMUSA00001-K200501638

PATIENT
  Age: 91 Year
  Sex: Male

DRUGS (5)
  1. ALTACE [Suspect]
     Indication: LEFT VENTRICULAR FAILURE
     Dosage: 2.5 MG, QD
     Route: 048
     Dates: start: 20050919, end: 20050901
  2. ALTACE [Suspect]
     Dosage: 5 MG, UNK
     Route: 048
     Dates: start: 20050901, end: 20050101
  3. ALTACE [Suspect]
     Dosage: 7.5 MG, UNK
     Route: 048
     Dates: start: 20050101, end: 20051001
  4. ASPIRIN [Concomitant]
     Dosage: 75 MG, UNK
  5. ZOPICLONE [Concomitant]
     Dosage: 75 MG, UNK

REACTIONS (1)
  - CONFUSIONAL STATE [None]
